FAERS Safety Report 8963742 (Version 2)
Quarter: 2013Q1

REPORT INFORMATION
  Report Type: Report from Study
  Country: US (occurrence: US)
  Receive Date: 20121214
  Receipt Date: 20130226
  Transmission Date: 20140127
  Serious: Yes (Hospitalization)
  Sender: FDA-Public Use
  Company Number: US-ACTELION-A-NJ2012-76382

PATIENT
  Age: 80 Year
  Sex: Male

DRUGS (2)
  1. VENTAVIS [Suspect]
     Indication: PULMONARY HYPERTENSION
     Dosage: 5 MCG, 3-9XDAILY
     Route: 055
     Dates: start: 201001
  2. ASPIRIN [Concomitant]

REACTIONS (8)
  - Hepatic cirrhosis [Recovering/Resolving]
  - Malnutrition [Recovering/Resolving]
  - Hyperalbuminaemia [Recovering/Resolving]
  - Pulmonary arterial hypertension [Recovering/Resolving]
  - Fluid retention [Recovering/Resolving]
  - Oedema [Recovering/Resolving]
  - Oedema peripheral [Recovering/Resolving]
  - Condition aggravated [Recovering/Resolving]
